FAERS Safety Report 15117383 (Version 1)
Quarter: 2018Q3

REPORT INFORMATION
  Report Type: Spontaneous
  Country: JP (occurrence: JP)
  Receive Date: 20180706
  Receipt Date: 20180706
  Transmission Date: 20181010
  Serious: Yes (Death)
  Sender: FDA-Public Use
  Company Number: JP-ALLERGAN-1833833US

PATIENT
  Age: 61 Year
  Sex: Male

DRUGS (6)
  1. MESALAZINE UNK [Suspect]
     Active Substance: MESALAMINE
     Indication: BEHCET^S SYNDROME
  2. MESALAZINE UNK [Suspect]
     Active Substance: MESALAMINE
     Indication: GASTROINTESTINAL AMYLOIDOSIS
     Dosage: 3000 MG, QD
     Route: 048
  3. PREDNISOLONE. [Suspect]
     Active Substance: PREDNISOLONE
     Indication: AMYLOIDOSIS
     Dosage: 20 MG, QD
     Route: 048
  4. COLCHICINE. [Suspect]
     Active Substance: COLCHICINE
     Indication: BEHCET^S SYNDROME
  5. COLCHICINE. [Suspect]
     Active Substance: COLCHICINE
     Indication: AMYLOIDOSIS
     Dosage: 1 MG, QD
     Route: 048
  6. PREDNISOLONE. [Suspect]
     Active Substance: PREDNISOLONE
     Indication: BEHCET^S SYNDROME

REACTIONS (3)
  - Urinary tract infection [Fatal]
  - Renal failure [Fatal]
  - Off label use [Unknown]
